FAERS Safety Report 5166308-X (Version None)
Quarter: 2006Q4

REPORT INFORMATION
  Report Type: 
  Country: None (occurrence: None)
  Receive Date: 20061129
  Receipt Date: 20061120
  Transmission Date: 20070319
  Serious: Yes (Life-Threatening, Hospitalization, Other)
  Sender: FDA-Public Use
  Company Number: 430016M06USA

PATIENT
  Age: 44 Year
  Sex: Female
  Weight: 136.1 kg

DRUGS (9)
  1. NOVANTRONE [Suspect]
     Indication: MULTIPLE SCLEROSIS
     Dates: start: 20020101
  2. ASPIRIN [Concomitant]
  3. ZANAFLEX [Concomitant]
  4. PLAVIX [Concomitant]
  5. ACTOS [Concomitant]
  6. GLIPIZIDE [Concomitant]
  7. ZOCOR [Concomitant]
  8. TOPAMAX [Concomitant]
  9. TOPROL-XL [Concomitant]

REACTIONS (1)
  - ACUTE LYMPHOCYTIC LEUKAEMIA [None]
